FAERS Safety Report 6204343-0 (Version None)
Quarter: 2009Q2

REPORT INFORMATION
  Report Type: 
  Country: None (occurrence: None)
  Receive Date: 20090521
  Receipt Date: 20090513
  Transmission Date: 20091009
  Serious: Yes (Hospitalization)
  Sender: FDA-Public Use
  Company Number: 2009SP001811

PATIENT
  Age: 51 Year
  Sex: Female
  Weight: 110 kg

DRUGS (13)
  1. INTEGRILIN [Suspect]
     Indication: MYOCARDIAL INFARCTION
     Dosage: 10.2 ML; ONCE; INBO; ONCE; IV;
     Route: 040
     Dates: start: 20090125, end: 20090125
  2. INTEGRILIN [Suspect]
     Indication: MYOCARDIAL INFARCTION
     Dosage: 10.2 ML; ONCE; INBO; ONCE; IV;
     Route: 040
     Dates: start: 20090125, end: 20090125
  3. INTEGRILIN [Suspect]
     Indication: MYOCARDIAL INFARCTION
     Dosage: 10.2 ML; ONCE; INBO; ONCE; IV;
     Route: 040
     Dates: start: 20090125, end: 20090125
  4. INTEGRILIN [Suspect]
     Indication: MYOCARDIAL INFARCTION
     Dosage: 10.2 ML; ONCE; INBO; ONCE; IV;
     Route: 040
     Dates: start: 20090127, end: 20090127
  5. INTEGRILIN [Suspect]
     Indication: MYOCARDIAL INFARCTION
     Dosage: 10.2 ML; ONCE; INBO; ONCE; IV;
     Route: 040
     Dates: start: 20090127, end: 20090127
  6. INTEGRILIN [Suspect]
     Indication: MYOCARDIAL INFARCTION
     Dosage: 10.2 ML; ONCE; INBO; ONCE; IV;
     Route: 040
     Dates: start: 20090127, end: 20090127
  7. GLYCERYL TRINITRATE [Concomitant]
  8. METOPROLOL SUCCINATE [Concomitant]
  9. HEPARIN [Concomitant]
  10. ASPIRIN [Concomitant]
  11. PERINDOPRIL [Concomitant]
  12. SIMVASTATIN [Concomitant]
  13. PLAVIX [Concomitant]

REACTIONS (6)
  - ARTERIOSPASM CORONARY [None]
  - BLOOD PRESSURE DECREASED [None]
  - DRUG INEFFECTIVE [None]
  - FEELING HOT [None]
  - MALAISE [None]
  - PRESYNCOPE [None]
